FAERS Safety Report 7962352 (Version 3)
Quarter: 2013Q2

REPORT INFORMATION
  Report Type: Spontaneous
  Country: US (occurrence: US)
  Receive Date: 20110526
  Receipt Date: 20130423
  Transmission Date: 20140414
  Serious: Yes (Hospitalization, Other)
  Sender: FDA-Public Use
  Company Number: US-AMGEN-USASP2011025563

PATIENT
  Age: 45 Year
  Sex: Male

DRUGS (1)
  1. ENBREL [Suspect]
     Indication: PSORIASIS
     Dosage: 50 MG, QWK
     Dates: start: 20030723

REACTIONS (11)
  - Cardiac arrest [Recovered/Resolved]
  - Skin discolouration [Unknown]
  - Multi-organ failure [Recovered/Resolved]
  - Foot deformity [Recovered/Resolved]
  - Myocardial infarction [Recovered/Resolved]
  - Local swelling [Unknown]
  - Swelling face [Unknown]
  - Gastrointestinal oedema [Unknown]
  - Staphylococcal infection [Recovered/Resolved]
  - Crohn^s disease [Recovered/Resolved]
  - Memory impairment [Not Recovered/Not Resolved]
